FAERS Safety Report 5078453-8 (Version None)
Quarter: 2006Q3

REPORT INFORMATION
  Report Type: 
  Country: None (occurrence: None)
  Receive Date: 20060811
  Receipt Date: 20060731
  Transmission Date: 20061208
  Serious: Yes (Other)
  Sender: FDA-Public Use
  Company Number: DE-NOVOPROD-255705

PATIENT
  Age: 2 Day

DRUGS (2)
  1. NOVOSEVEN [Suspect]
     Indication: PROPHYLAXIS
     Dosage: 100 MCG/KG
     Route: 042
  2. NOVOSEVEN [Suspect]
     Dosage: 100 UG/KG EVERY FOUR HOURS
     Route: 042

REACTIONS (2)
  - CATHETER RELATED COMPLICATION [None]
  - IMPLANT SITE THROMBOSIS [None]
